FAERS Safety Report 7230725-4 (Version None)
Quarter: 2011Q1

REPORT INFORMATION
  Report Type: 
  Country: None (occurrence: None)
  Receive Date: 20110118
  Receipt Date: 20110111
  Transmission Date: 20110831
  Serious: Yes (Other)
  Sender: FDA-Public Use
  Company Number: US-JNJFOC-20110103193

PATIENT
  Sex: Male
  Weight: 95.26 kg

DRUGS (3)
  1. LISINOPRIL [Concomitant]
     Indication: HYPERTENSION
     Route: 048
  2. LEVOTHYROXINE [Concomitant]
     Indication: THYROID DISORDER
     Route: 048
  3. LEVAQUIN [Suspect]
     Indication: NASAL OPERATION
     Route: 048

REACTIONS (5)
  - TENDON DISORDER [None]
  - FEELING ABNORMAL [None]
  - INSOMNIA [None]
  - DISABILITY [None]
  - EXTRASYSTOLES [None]
